FAERS Safety Report 4291706-6 (Version None)
Quarter: 2004Q1

REPORT INFORMATION
  Report Type: 
  Country: None (occurrence: None)
  Receive Date: 20040211
  Receipt Date: 20021119
  Transmission Date: 20041129
  Serious: Yes (Other)
  Sender: FDA-Public Use
  Company Number: US-GLAXOSMITHKLINE-A0387018A

PATIENT
  Age: 29 Year
  Sex: Female
  Weight: 98.2 kg

DRUGS (4)
  1. IMITREX [Suspect]
     Route: 065
  2. CELEXA [Concomitant]
  3. WELLBUTRIN SR [Concomitant]
  4. HERBAL TEA [Concomitant]

REACTIONS (4)
  - CONVULSION [None]
  - HEADACHE [None]
  - LOSS OF CONSCIOUSNESS [None]
  - STARING [None]
